FAERS Safety Report 21155430 (Version 1)
Quarter: 2022Q3

REPORT INFORMATION
  Report Type: Spontaneous
  Country: CA (occurrence: CA)
  Receive Date: 20220801
  Receipt Date: 20220801
  Transmission Date: 20221027
  Serious: Yes (Other)
  Sender: FDA-Public Use
  Company Number: None

PATIENT
  Age: 45 Year
  Sex: Female

DRUGS (4)
  1. METHOTREXATE [Suspect]
     Active Substance: METHOTREXATE
     Indication: Product used for unknown indication
  2. HYDROXYCHLOROQUINE [Concomitant]
     Active Substance: HYDROXYCHLOROQUINE
  3. MYCOPHENOLATE MOFETIL [Concomitant]
     Active Substance: MYCOPHENOLATE MOFETIL
  4. NIFEDIPINE [Concomitant]
     Active Substance: NIFEDIPINE

REACTIONS (5)
  - Cytopenia [Unknown]
  - Hypertransaminasaemia [Unknown]
  - Lymphopenia [Unknown]
  - Neutropenia [Unknown]
  - Treatment failure [Unknown]
